FAERS Safety Report 5005122-2 (Version None)
Quarter: 2006Q2

REPORT INFORMATION
  Report Type: 
  Country: None (occurrence: None)
  Receive Date: 20060512
  Receipt Date: 20060427
  Transmission Date: 20061013
  Serious: Yes (Death, Other)
  Sender: FDA-Public Use
  Company Number: 2006RL000150

PATIENT
  Age: 64 Year
  Sex: Male

DRUGS (1)
  1. PROPAFENONE HYDROCHLORIDE [Suspect]

REACTIONS (5)
  - ATRIOVENTRICULAR BLOCK COMPLETE [None]
  - ATRIOVENTRICULAR BLOCK THIRD DEGREE [None]
  - CARDIAC ARREST [None]
  - DIARRHOEA [None]
  - TACHYCARDIA [None]
